FAERS Safety Report 8463864-0 (Version None)
Quarter: 2012Q2

REPORT INFORMATION
  Report Type: 
  Country: None (occurrence: None)
  Receive Date: 20120625
  Receipt Date: 20120611
  Transmission Date: 20120825
  Serious: No
  Sender: FDA-Public Use
  Company Number: US-ASTRAZENECA-2012SE39018

PATIENT
  Age: 63 Year
  Sex: Female

DRUGS (3)
  1. NEXIUM [Suspect]
     Route: 048
  2. ZANTAC [Concomitant]
  3. OMEPRAZOLE [Suspect]
     Route: 048

REACTIONS (7)
  - INTENTIONAL DRUG MISUSE [None]
  - BURNING SENSATION [None]
  - DRUG DOSE OMISSION [None]
  - MALAISE [None]
  - DRUG INEFFECTIVE [None]
  - ABDOMINAL DISCOMFORT [None]
  - BREAST MASS [None]
